FAERS Safety Report 9841540 (Version 2)
Quarter: 2014Q1

REPORT INFORMATION
  Report Type: Spontaneous
  Country: FR (occurrence: FR)
  Receive Date: 20140124
  Receipt Date: 20140331
  Transmission Date: 20141002
  Serious: Yes (Hospitalization)
  Sender: FDA-Public Use
  Company Number: FR-PFIZER INC-2014019101

PATIENT
  Age: 70 Year
  Sex: Female

DRUGS (9)
  1. AROMASINE [Suspect]
     Indication: BREAST CANCER METASTATIC
     Dosage: 25 MG, 1X/DAY
     Route: 048
     Dates: start: 20131219, end: 20131230
  2. AROMASINE [Suspect]
     Dosage: UNK
     Dates: start: 20140106
  3. AFINITOR [Suspect]
     Indication: BREAST CANCER METASTATIC
     Dosage: 10 MG, 1X/DAY
     Route: 048
     Dates: start: 20131219, end: 20131230
  4. ALPRAZOLAM [Concomitant]
     Dosage: 0.5 MG, 1X/DAY
     Route: 048
  5. PLAVIX [Concomitant]
     Dosage: 75 MG, 1X/DAY
     Route: 048
  6. LASILIX FAIBLE [Concomitant]
     Dosage: 20 MG, 1X/DAY
     Route: 048
  7. KARDEGIC [Concomitant]
     Dosage: 75 MG, 1X/DAY
     Route: 048
  8. TRIATEC [Concomitant]
     Dosage: 1.25 MG, 1X/DAY
     Route: 048
  9. INEXIUM [Concomitant]
     Dosage: 40 MG, 1X/DAY
     Route: 048

REACTIONS (3)
  - Dysentery [Recovered/Resolved]
  - Febrile convulsion [Recovered/Resolved]
  - Mucous stools [Recovered/Resolved]
